FAERS Safety Report 15882005 (Version 1)
Quarter: 2019Q1

REPORT INFORMATION
  Report Type: Spontaneous
  Country: FR (occurrence: FR)
  Receive Date: 20190128
  Receipt Date: 20190128
  Transmission Date: 20190417
  Serious: Yes (Life-Threatening, Hospitalization)
  Sender: FDA-Public Use
  Company Number: FR-PFIZER INC-2019035059

PATIENT
  Age: 84 Year
  Sex: Female
  Weight: 81.8 kg

DRUGS (14)
  1. AMLODIPINE [Concomitant]
     Active Substance: AMLODIPINE BESYLATE
     Dosage: 10 MG, UNK
  2. RILMENIDINE [Concomitant]
     Active Substance: RILMENIDINE
     Dosage: 1 MG, UNK
  3. FUROSEMIDE. [Concomitant]
     Active Substance: FUROSEMIDE
     Dosage: 40 MG, UNK
  4. HYDROCORTISONE ROUSSEL [HYDROCORTISONE ACETATE] [Suspect]
     Active Substance: HYDROCORTISONE ACETATE
     Dosage: 10 MG, UNK
     Route: 048
     Dates: start: 20181206
  5. ATORVASTATINE [ATORVASTATIN] [Concomitant]
     Active Substance: ATORVASTATIN
     Dosage: 40 MG, UNK
  6. SERESTA [Suspect]
     Active Substance: OXAZEPAM
     Dosage: 20 MG, UNK
     Route: 048
     Dates: start: 20181206
  7. ABASAGLAR [Concomitant]
     Active Substance: INSULIN GLARGINE
     Dosage: 100 UNITS/ML
  8. NOVORAPID [Concomitant]
     Active Substance: INSULIN ASPART
  9. TENORETIC [Concomitant]
     Active Substance: ATENOLOL\CHLORTHALIDONE
  10. DUPHALAC [Concomitant]
     Active Substance: LACTULOSE
     Dosage: UNK (POWDER FOR ORAL OR RECTAL SOLUTION)
  11. INEXIUM [ESOMEPRAZOLE MAGNESIUM] [Concomitant]
     Active Substance: ESOMEPRAZOLE MAGNESIUM
  12. VENLAFAXINE HCL [Suspect]
     Active Substance: VENLAFAXINE HYDROCHLORIDE
     Dosage: 37.5 MG, UNK
     Route: 048
     Dates: start: 20181206
  13. GABAPENTIN. [Suspect]
     Active Substance: GABAPENTIN
     Dosage: 300 MG, UNK
     Route: 048
     Dates: start: 20181206
  14. KARDEGIC [Concomitant]
     Active Substance: ASPIRIN DL-LYSINE

REACTIONS (6)
  - Anuria [Recovered/Resolved]
  - Drug dispensed to wrong patient [Recovered/Resolved]
  - Somnolence [Recovered/Resolved]
  - Hypercapnia [Recovered/Resolved]
  - Wrong product administered [Recovered/Resolved]
  - Product dispensing error [None]

NARRATIVE: CASE EVENT DATE: 20181206
